FAERS Safety Report 9436097 (Version 1)
Quarter: 2013Q3

REPORT INFORMATION
  Report Type: Report from Study
  Country: US (occurrence: US)
  Receive Date: 20130801
  Receipt Date: 20130801
  Transmission Date: 20140515
  Serious: Yes (Other)
  Sender: FDA-Public Use
  Company Number: US-B.I. PHARMACEUTICALS,INC./RIDGEFIELD-2013-BI-22961GD

PATIENT
  Sex: 0

DRUGS (5)
  1. VIRAMUNE [Suspect]
     Indication: HIV INFECTION
     Dosage: 400 MG
  2. CARBAMAZEPINE [Suspect]
     Indication: STATUS EPILEPTICUS
     Dosage: 1000 MG
  3. ZIDOVUDINE [Concomitant]
     Indication: HIV INFECTION
  4. DIDANOSINE [Concomitant]
     Indication: HIV INFECTION
  5. ABACAVIR [Concomitant]
     Indication: HIV INFECTION

REACTIONS (3)
  - Convulsion [Recovered/Resolved]
  - Drug interaction [Unknown]
  - Antiviral drug level below therapeutic [Unknown]
